FAERS Safety Report 9162135 (Version 1)
Quarter: 2013Q1

REPORT INFORMATION
  Report Type: Spontaneous
  Country: US (occurrence: US)
  Receive Date: 20130314
  Receipt Date: 20130314
  Transmission Date: 20140127
  Serious: Yes (Hospitalization)
  Sender: FDA-Public Use
  Company Number: US-BAYER-2013-028099

PATIENT
  Age: 37 Year
  Sex: Female
  Weight: 104 kg

DRUGS (6)
  1. SAFYRAL [Suspect]
     Dosage: UNK
     Dates: start: 20111111, end: 20120716
  2. MAXALT [Concomitant]
     Dosage: 10 MG, UNK
  3. ACETAMINOP. W/BUTALBITAL/CAFF./CODEINE PHOSP. [Concomitant]
  4. PROMETHAZINE [PROMETHAZINE] [Concomitant]
     Dosage: 25 MG, UNK
  5. LEVOTHYROXIN [Concomitant]
     Dosage: 25MCG
  6. PROPRANOLOL [Concomitant]
     Dosage: 60 MG, UNK

REACTIONS (1)
  - Deep vein thrombosis [None]
